FAERS Safety Report 24372573 (Version 1)
Quarter: 2024Q3

REPORT INFORMATION
  Report Type: Report from Study
  Country: GB (occurrence: GB)
  Receive Date: 20240927
  Receipt Date: 20240927
  Transmission Date: 20241017
  Serious: Yes (Other)
  Sender: TEVA
  Company Number: GB-TEVA-VS-3246352

PATIENT
  Age: 42 Year
  Sex: Female

DRUGS (1)
  1. AJOVY [Suspect]
     Active Substance: FREMANEZUMAB-VFRM
     Indication: Migraine
     Route: 058
     Dates: start: 202408

REACTIONS (6)
  - Blister [Unknown]
  - Skin fissures [Unknown]
  - Rash [Unknown]
  - Peripheral swelling [Unknown]
  - Skin burning sensation [Unknown]
  - Skin weeping [Recovered/Resolved]

NARRATIVE: CASE EVENT DATE: 20240801
